FAERS Safety Report 18376000 (Version 1)
Quarter: 2020Q4

REPORT INFORMATION
  Report Type: Spontaneous
  Country: US (occurrence: US)
  Receive Date: 20201009
  Receipt Date: 20201009
  Transmission Date: 20210114
  Serious: Yes (Hospitalization)
  Sender: FDA-Public Use
  Company Number: None

PATIENT
  Age: 76 Year
  Sex: Female

DRUGS (14)
  1. SYNTHROID [Concomitant]
     Active Substance: LEVOTHYROXINE SODIUM
  2. XARELTO [Concomitant]
     Active Substance: RIVAROXABAN
  3. CAPECITABINE 500MG TAB [Suspect]
     Active Substance: CAPECITABINE
     Indication: BREAST CANCER FEMALE
     Dosage: 2TABS (100MG) BID-14 D PO
     Route: 048
  4. CRESTOR [Concomitant]
     Active Substance: ROSUVASTATIN CALCIUM
  5. AMIODARONE [Concomitant]
     Active Substance: AMIODARONE
  6. VITAMIN B12 [Concomitant]
     Active Substance: CYANOCOBALAMIN
  7. TEMAZEPAM. [Concomitant]
     Active Substance: TEMAZEPAM
  8. TOPROL XL [Concomitant]
     Active Substance: METOPROLOL SUCCINATE
  9. ZETIA [Concomitant]
     Active Substance: EZETIMIBE
  10. OXYCODONE [Concomitant]
     Active Substance: OXYCODONE
  11. VITAMIN D3 [Concomitant]
     Active Substance: CHOLECALCIFEROL
  12. LASIX [Concomitant]
     Active Substance: FUROSEMIDE
  13. VICTOZA [Concomitant]
     Active Substance: LIRAGLUTIDE
  14. TRESIBA FLEX [Concomitant]

REACTIONS (3)
  - Therapy interrupted [None]
  - Arrhythmia [None]
  - Malaise [None]

NARRATIVE: CASE EVENT DATE: 20201007
